FAERS Safety Report 18788510 (Version 1)
Quarter: 2021Q1

REPORT INFORMATION
  Report Type: Spontaneous
  Country: US (occurrence: US)
  Receive Date: 20210125
  Receipt Date: 20210125
  Transmission Date: 20210419
  Serious: No
  Sender: FDA-Public Use
  Company Number: US-ROCHE-2697790

PATIENT
  Sex: Male

DRUGS (3)
  1. LEFLUNOMIDE. [Concomitant]
     Active Substance: LEFLUNOMIDE
     Indication: ARTHRITIS
  2. RITUXAN [Suspect]
     Active Substance: RITUXIMAB
     Indication: ARTHRITIS
     Route: 042
  3. ORENCIA [Concomitant]
     Active Substance: ABATACEPT
     Indication: ARTHRITIS

REACTIONS (1)
  - Infusion related reaction [Unknown]
